FAERS Safety Report 4978609-6 (Version None)
Quarter: 2006Q2

REPORT INFORMATION
  Report Type: 
  Country: None (occurrence: None)
  Receive Date: 20060420
  Receipt Date: 20050829
  Transmission Date: 20061013
  Serious: Yes (Hospitalization)
  Sender: FDA-Public Use
  Company Number: US-MERCK-0508USA04803

PATIENT
  Age: 64 Year
  Sex: Male
  Weight: 109 kg

DRUGS (12)
  1. ACTOS [Concomitant]
     Route: 065
  2. PRINIVIL [Concomitant]
     Route: 065
  3. LIPITOR [Concomitant]
     Route: 065
  4. ASPIRIN [Concomitant]
     Route: 065
  5. [THERAPY UNSPECIFIED] [Concomitant]
     Route: 065
  6. AVAPRO [Concomitant]
     Route: 065
  7. MAXZIDE [Concomitant]
     Route: 065
  8. INSULIN [Concomitant]
     Route: 065
  9. NORVASC [Concomitant]
     Route: 065
  10. VIOXX [Suspect]
     Indication: ARTHRITIS
     Route: 048
     Dates: start: 20031101, end: 20040901
  11. PROPRANOLOL HYDROCHLORIDE [Concomitant]
     Route: 065
  12. AMITRIPTYLIN [Concomitant]
     Route: 065

REACTIONS (4)
  - BLOOD PRESSURE ABNORMAL [None]
  - CARDIAC DISORDER [None]
  - CARDIAC FAILURE CONGESTIVE [None]
  - CATARACT [None]
